FAERS Safety Report 13153339 (Version 1)
Quarter: 2017Q1

REPORT INFORMATION
  Report Type: Report from Study
  Country: DE (occurrence: DE)
  Receive Date: 20170126
  Receipt Date: 20170126
  Transmission Date: 20170428
  Serious: Yes (Hospitalization)
  Sender: FDA-Public Use
  Company Number: DE-BIOGEN-2017BI00348636

PATIENT
  Age: 52 Year
  Sex: Female
  Weight: 92 kg

DRUGS (1)
  1. PLEGRIDY [Suspect]
     Active Substance: PEGINTERFERON BETA-1A
     Indication: MULTIPLE SCLEROSIS
     Route: 058
     Dates: start: 20150128, end: 201611

REACTIONS (2)
  - Pharyngeal oedema [Unknown]
  - Laryngeal mass [Recovered/Resolved with Sequelae]

NARRATIVE: CASE EVENT DATE: 201608
